FAERS Safety Report 6547354-8 (Version None)
Quarter: 2010Q1

REPORT INFORMATION
  Report Type: 
  Country: None (occurrence: None)
  Receive Date: 20100122
  Receipt Date: 20100113
  Transmission Date: 20100710
  Serious: Yes (Other)
  Sender: FDA-Public Use
  Company Number: US-ROCHE-679729

PATIENT
  Sex: Female
  Weight: 67 kg

DRUGS (13)
  1. TOCILIZUMAB [Suspect]
     Indication: RHEUMATOID ARTHRITIS
     Dosage: LAST DOSE: 7 JAN 10
     Route: 042
     Dates: start: 20091218
  2. METHOTREXATE [Suspect]
     Indication: RHEUMATOID ARTHRITIS
     Route: 065
     Dates: start: 20090819, end: 20100112
  3. FOLIC ACID [Concomitant]
     Dates: start: 20090819
  4. FOLIC ACID [Concomitant]
  5. ACIPHEX [Concomitant]
     Dates: start: 20040101
  6. LEVOXYL [Concomitant]
     Dates: start: 20030101
  7. LIPITOR [Concomitant]
     Dates: start: 20040101
  8. ZOLOFT [Concomitant]
     Dates: start: 19990101
  9. ZYRTEC [Concomitant]
     Dates: start: 20030101
  10. CALCIUM [Concomitant]
     Dates: start: 19870101
  11. FISH OIL [Concomitant]
     Dates: start: 20070101
  12. MAGNESIUM [Concomitant]
     Dates: start: 20080101
  13. VITAMINE D [Concomitant]
     Dates: start: 20080101

REACTIONS (1)
  - LABORATORY TEST ABNORMAL [None]
